FAERS Safety Report 5384072-6 (Version None)
Quarter: 2007Q3

REPORT INFORMATION
  Report Type: 
  Country: None (occurrence: None)
  Receive Date: 20070709
  Receipt Date: 20070403
  Transmission Date: 20080115
  Serious: Yes (Other)
  Sender: FDA-Public Use
  Company Number: US-2007-012077

PATIENT
  Age: 24 Year
  Sex: Female
  Weight: 71.7 kg

DRUGS (1)
  1. ULTRAVIST 300 [Suspect]
     Indication: COMPUTERISED TOMOGRAM
     Dosage: 75 ML, 1 DOSE, INTRAVENOUS
     Route: 042
     Dates: start: 20070330, end: 20070330

REACTIONS (4)
  - DYSPNOEA [None]
  - FEELING HOT [None]
  - INJECTION SITE RASH [None]
  - SNEEZING [None]
